FAERS Safety Report 6637726-5 (Version None)
Quarter: 2010Q1

REPORT INFORMATION
  Report Type: 
  Country: None (occurrence: None)
  Receive Date: 20100317
  Receipt Date: 20070906
  Transmission Date: 20100710
  Serious: Yes (Other)
  Sender: FDA-Public Use
  Company Number: NL-GENZYME-FABR-1001240

PATIENT
  Sex: Female

DRUGS (1)
  1. FABRAZYME [Suspect]
     Indication: FABRY'S DISEASE
     Dosage: 0.2 MG/KG, Q2W
     Route: 042

REACTIONS (2)
  - ATRIAL FIBRILLATION [None]
  - DEAFNESS [None]
